FAERS Safety Report 24923555 (Version 2)
Quarter: 2025Q1

REPORT INFORMATION
  Report Type: Spontaneous
  Country: FR (occurrence: FR)
  Receive Date: 20250204
  Receipt Date: 20250212
  Transmission Date: 20250409
  Serious: Yes (Death, Other)
  Sender: PURDUE
  Company Number: FR-PURDUE-USA-2025-0315077

PATIENT
  Age: 28 Year
  Sex: Female

DRUGS (6)
  1. OXYCODONE HYDROCHLORIDE [Suspect]
     Active Substance: OXYCODONE HYDROCHLORIDE
     Indication: Poisoning deliberate
     Route: 048
     Dates: start: 20241226, end: 20241226
  2. ACETAMINOPHEN [Suspect]
     Active Substance: ACETAMINOPHEN
     Indication: Poisoning deliberate
     Route: 048
     Dates: start: 20241226, end: 20241226
  3. KETOPROFEN [Suspect]
     Active Substance: KETOPROFEN
     Indication: Poisoning deliberate
     Route: 048
     Dates: start: 20241226, end: 20241226
  4. ALPRAZOLAM [Suspect]
     Active Substance: ALPRAZOLAM
     Indication: Poisoning deliberate
     Route: 048
     Dates: start: 20241226, end: 20241226
  5. LAMALINE (ACETAMINOPHEN\CAFFEINE\OPIUM) [Suspect]
     Active Substance: ACETAMINOPHEN\CAFFEINE\OPIUM
     Indication: Poisoning deliberate
     Route: 048
     Dates: start: 20241226, end: 20241226
  6. SERTRALINE HYDROCHLORIDE [Suspect]
     Active Substance: SERTRALINE HYDROCHLORIDE
     Indication: Poisoning deliberate
     Route: 048
     Dates: start: 20241226, end: 20241226

REACTIONS (3)
  - Hepatitis fulminant [Fatal]
  - Poisoning deliberate [Fatal]
  - Overdose [Fatal]

NARRATIVE: CASE EVENT DATE: 20241226
